FAERS Safety Report 6868993-0 (Version None)
Quarter: 2010Q3

REPORT INFORMATION
  Report Type: 
  Country: None (occurrence: None)
  Receive Date: 20100722
  Receipt Date: 20080625
  Transmission Date: 20110219
  Serious: No
  Sender: FDA-Public Use
  Company Number: US-PFIZER INC-2008054481

PATIENT
  Sex: Female
  Weight: 81.65 kg

DRUGS (6)
  1. CHANTIX [Suspect]
     Indication: SMOKING CESSATION THERAPY
     Dates: start: 20080612
  2. METFORMIN HYDROCHLORIDE [Concomitant]
     Indication: POLYCYSTIC OVARIES
  3. HEPAGRISEVIT FORTE-N TABLET [Concomitant]
  4. LEVOTHYROXINE SODIUM [Concomitant]
     Indication: THYROID DISORDER
  5. RAMIPRIL [Concomitant]
  6. SPIRONOLACTONE [Concomitant]

REACTIONS (1)
  - PRURITUS GENERALISED [None]
